FAERS Safety Report 6774590-8 (Version None)
Quarter: 2010Q2

REPORT INFORMATION
  Report Type: 
  Country: None (occurrence: None)
  Receive Date: 20100615
  Receipt Date: 20100615
  Transmission Date: 20101027
  Serious: Yes (Other)
  Sender: FDA-Public Use
  Company Number: None

PATIENT
  Age: 44 Year
  Sex: Female
  Weight: 70.3075 kg

DRUGS (2)
  1. DIFLUCAN [Suspect]
     Indication: VULVOVAGINAL CANDIDIASIS
     Dosage: QD PO QOD X 3 DOSES PO
     Route: 048
  2. . [Concomitant]

REACTIONS (6)
  - DISEASE RECURRENCE [None]
  - FUNGAL INFECTION [None]
  - IMMUNE SYSTEM DISORDER [None]
  - LIP SWELLING [None]
  - PERIORBITAL OEDEMA [None]
  - RASH PRURITIC [None]
